FAERS Safety Report 18473572 (Version 5)
Quarter: 2024Q2

REPORT INFORMATION
  Report Type: Report from Study
  Country: IT (occurrence: IT)
  Receive Date: 20201106
  Receipt Date: 20240612
  Transmission Date: 20240716
  Serious: Yes (Hospitalization, Disabling, Other)
  Sender: FDA-Public Use
  Company Number: IT-IPSEN GROUP, RESEARCH AND DEVELOPMENT-2011-1752

PATIENT
  Age: 14 Year
  Sex: Male
  Weight: 26.2 kg

DRUGS (7)
  1. INCRELEX [Suspect]
     Active Substance: MECASERMIN
     Indication: Severe primary insulin like growth factor-1 deficiency
     Dosage: 0.04 MG/ KG = 40 UG/ KG
     Route: 058
     Dates: start: 20090202, end: 20090208
  2. INCRELEX [Suspect]
     Active Substance: MECASERMIN
     Indication: Growth failure
     Dosage: 0.08 MG/KG = 80 UG/ KG
     Route: 058
     Dates: start: 20090209, end: 20090907
  3. INCRELEX [Suspect]
     Active Substance: MECASERMIN
     Dosage: 0.12 MG/KG = 120 UG/ KG
     Route: 058
     Dates: start: 20090908, end: 20110112
  4. INCRELEX [Suspect]
     Active Substance: MECASERMIN
     Dosage: 0.11 MG/KG = 110 UG/ KG
     Route: 058
     Dates: start: 20110113, end: 20110719
  5. INCRELEX [Suspect]
     Active Substance: MECASERMIN
     Dosage: 0.12 MG/ KG = 120 UG/ KG
     Route: 058
     Dates: start: 20110720, end: 20111014
  6. INCRELEX [Suspect]
     Active Substance: MECASERMIN
  7. IRON [Concomitant]
     Active Substance: IRON

REACTIONS (6)
  - Radius fracture [Recovered/Resolved]
  - Acromegaly [Recovered/Resolved]
  - Acromegaly [Recovered/Resolved]
  - Gynaecomastia [Recovered/Resolved]
  - Hepatosplenomegaly [Recovered/Resolved]
  - Product dose omission issue [Unknown]

NARRATIVE: CASE EVENT DATE: 20090716
